FAERS Safety Report 9216534 (Version 1)
Quarter: 2013Q2

REPORT INFORMATION
  Report Type: Spontaneous
  Country: US (occurrence: US)
  Receive Date: 20130408
  Receipt Date: 20130408
  Transmission Date: 20140414
  Serious: No
  Sender: FDA-Public Use
  Company Number: US-PFIZER INC-2013107570

PATIENT
  Age: 41 Year
  Sex: Female
  Weight: 68.03 kg

DRUGS (1)
  1. NEURONTIN [Suspect]
     Indication: FIBROMYALGIA
     Dosage: 300 MG, 3X/DAY
     Dates: start: 2012, end: 201205

REACTIONS (2)
  - Off label use [Recovered/Resolved]
  - Drug ineffective for unapproved indication [Unknown]
